FAERS Safety Report 11279940 (Version 1)
Quarter: 2015Q3

REPORT INFORMATION
  Report Type: Spontaneous
  Country: US (occurrence: None)
  Receive Date: 20150716
  Receipt Date: 20150716
  Transmission Date: 20151125
  Serious: Yes (Life-Threatening, Hospitalization, Disabling)
  Sender: FDA-Public Use
  Company Number: None

PATIENT
  Age: 82 Year
  Sex: Female
  Weight: 75.3 kg

DRUGS (1)
  1. AMIODARONE [Suspect]
     Active Substance: AMIODARONE

REACTIONS (16)
  - Cough [None]
  - Disorientation [None]
  - Abnormal dreams [None]
  - Alopecia [None]
  - Hypothyroidism [None]
  - Vision blurred [None]
  - Pain in extremity [None]
  - Dizziness [None]
  - Chest discomfort [None]
  - Fatigue [None]
  - Blindness [None]
  - Dyspnoea [None]
  - Amnesia [None]
  - Fluid retention [None]
  - Hypoaesthesia [None]
  - Burning sensation [None]

NARRATIVE: CASE EVENT DATE: 20140822
